FAERS Safety Report 5876390-X (Version None)
Quarter: 2008Q3

REPORT INFORMATION
  Report Type: 
  Country: None (occurrence: None)
  Receive Date: 20080909
  Receipt Date: 20080909
  Transmission Date: 20090109
  Serious: Yes (Hospitalization)
  Sender: FDA-Public Use
  Company Number: None

PATIENT
  Age: 29 Year
  Sex: Female
  Weight: 84.36 kg

DRUGS (2)
  1. CYTOXAN [Suspect]
     Indication: WEGENER'S GRANULOMATOSIS
     Dosage: 100 MG DAILY PO
     Route: 048
     Dates: start: 20080901, end: 20080903
  2. CYTOXAN [Suspect]
     Indication: WEGENER'S GRANULOMATOSIS
     Dosage: 50 MG DAILY PO
     Route: 048
     Dates: start: 20080829, end: 20080901

REACTIONS (1)
  - HEPATIC ENZYME INCREASED [None]
